FAERS Safety Report 23642134 (Version 1)
Quarter: 2024Q1

REPORT INFORMATION
  Report Type: Spontaneous
  Country: GB (occurrence: GB)
  Receive Date: 20240318
  Receipt Date: 20240318
  Transmission Date: 20240410
  Serious: Yes (Hospitalization)
  Sender: FDA-Public Use
  Company Number: None

PATIENT
  Age: 85 Year
  Sex: Male

DRUGS (8)
  1. SERTRALINE [Suspect]
     Active Substance: SERTRALINE HYDROCHLORIDE
     Indication: Product used for unknown indication
     Dosage: EVERY MORNING
  2. PERINDOPRIL [Concomitant]
     Active Substance: PERINDOPRIL
  3. DORZOLAMIDE [Concomitant]
     Active Substance: DORZOLAMIDE
  4. TAFLUPROST [Concomitant]
     Active Substance: TAFLUPROST
  5. AMLODIPINE [Concomitant]
     Active Substance: AMLODIPINE BESYLATE
  6. MEMANTINE [Concomitant]
     Active Substance: MEMANTINE
  7. ASPIRIN [Concomitant]
     Active Substance: ASPIRIN
  8. METHYLPREDNISOLONE [Concomitant]
     Active Substance: METHYLPREDNISOLONE

REACTIONS (1)
  - Femur fracture [Unknown]
